FAERS Safety Report 26106762 (Version 1)
Quarter: 2025Q4

REPORT INFORMATION
  Report Type: Spontaneous
  Country: US (occurrence: US)
  Receive Date: 20251201
  Receipt Date: 20251201
  Transmission Date: 20260117
  Serious: Yes (Other)
  Sender: CATALYST PHARMA
  Company Number: US-CATALYST PHARMACEUTICALS, INC-US-CATA-25-01805

PATIENT
  Sex: Male
  Weight: 77.098 kg

DRUGS (2)
  1. FIRDAPSE [Suspect]
     Active Substance: AMIFAMPRIDINE PHOSPHATE
     Indication: Myasthenic syndrome
     Dosage: 1 TABLET 3 TIMES A DAY FOR 30 DAYS, AND THEN INCREASE BY 5MG EVERY 5 DAYS TO A TOTAL OF 80 MGS
     Route: 048
     Dates: start: 20250824, end: 2025
  2. FIRDAPSE [Suspect]
     Active Substance: AMIFAMPRIDINE PHOSPHATE
     Dosage: 2 (10 MG) TABLETS 5 TIMES A DAY PER PRESCRIPTION, BUT WIFE STATED HE^S TAKING 2 TABLETS TWICE A DAY
     Route: 048
     Dates: start: 2025

REACTIONS (3)
  - Metastases to central nervous system [Not Recovered/Not Resolved]
  - Decreased appetite [Not Recovered/Not Resolved]
  - Intentional product use issue [Unknown]

NARRATIVE: CASE EVENT DATE: 20250101
